FAERS Safety Report 7058648-4 (Version None)
Quarter: 2010Q4

REPORT INFORMATION
  Report Type: 
  Country: None (occurrence: None)
  Receive Date: 20101022
  Receipt Date: 20101014
  Transmission Date: 20110411
  Serious: Yes (Hospitalization)
  Sender: FDA-Public Use
  Company Number: PHHY2010US69537

PATIENT
  Sex: Male

DRUGS (4)
  1. EXJADE [Suspect]
     Indication: ACUTE MYELOID LEUKAEMIA
     Dosage: 750 MG, QD
     Route: 048
     Dates: start: 20100916
  2. CHEMOTHERAPEUTICS NOS [Concomitant]
     Dosage: UNK
  3. PLATELETS [Concomitant]
     Dosage: UNK
  4. BLOOD TRANSFUSION, AUXILIARY PRODUCTS [Concomitant]
     Dosage: UNK

REACTIONS (1)
  - BACK PAIN [None]
